FAERS Safety Report 11549841 (Version 1)
Quarter: 2015Q3

REPORT INFORMATION
  Report Type: Spontaneous
  Country: US (occurrence: US)
  Receive Date: 20150924
  Receipt Date: 20150924
  Transmission Date: 20151125
  Serious: No
  Sender: FDA-Public Use
  Company Number: US-INCYTE CORPORATION-2015IN003564

PATIENT
  Age: 73 Year
  Sex: Male

DRUGS (12)
  1. ASPIRIN. [Concomitant]
     Active Substance: ASPIRIN
     Dosage: 81 MG, QD
  2. ZOVIRAX [Concomitant]
     Active Substance: ACYCLOVIR
     Dosage: 400 MG THREE TIMES PER WEEK
     Route: 048
  3. ZOVIRAX [Concomitant]
     Active Substance: ACYCLOVIR
     Dosage: 400 MG EVERY OTHER DAY FOR 7 DAYS
  4. CATAPRES                           /00171101/ [Concomitant]
     Active Substance: CLONIDINE
     Dosage: 0.2 MG, QD
     Route: 048
  5. JAKAFI [Suspect]
     Active Substance: RUXOLITINIB
     Dosage: 10 MG, QD
     Route: 048
     Dates: start: 20150706, end: 20150706
  6. JAKAFI [Suspect]
     Active Substance: RUXOLITINIB
     Dosage: 10 MG THREE TIMES A WEEK M-W-F
     Route: 048
     Dates: start: 20150717
  7. JAKAFI [Suspect]
     Active Substance: RUXOLITINIB
     Indication: POLYCYTHAEMIA VERA
     Dosage: 10 MG, BID
     Route: 048
     Dates: start: 20150428, end: 20150504
  8. JAKAFI [Suspect]
     Active Substance: RUXOLITINIB
     Dosage: 0.5 TABLET (10 MG) DAILY
     Route: 048
     Dates: start: 20150710, end: 20150713
  9. ASPIRIN. [Concomitant]
     Active Substance: ASPIRIN
     Dosage: 325 MG (1/2 TABLET DAILY)
     Route: 048
  10. LIBRAX                             /00847101/ [Concomitant]
     Dosage: 5-2.5 MG CAPSULE DAILY PRN
     Route: 048
  11. JAKAFI [Suspect]
     Active Substance: RUXOLITINIB
     Dosage: 10 MG, QD
     Route: 048
     Dates: start: 20150505, end: 20150705
  12. KLONOPIN [Concomitant]
     Active Substance: CLONAZEPAM
     Dosage: 1 MG PRN
     Route: 048

REACTIONS (9)
  - Limb discomfort [Recovering/Resolving]
  - Drug dose omission [Recovered/Resolved]
  - Fatigue [Recovering/Resolving]
  - Pyrexia [Recovered/Resolved]
  - Headache [Recovered/Resolved]
  - Flushing [Unknown]
  - Medication error [Recovered/Resolved]
  - Diarrhoea [Unknown]
  - Pruritus [Recovered/Resolved]

NARRATIVE: CASE EVENT DATE: 20150601
